FAERS Safety Report 17259518 (Version 1)
Quarter: 2020Q1

REPORT INFORMATION
  Report Type: Spontaneous
  Country: CA (occurrence: CA)
  Receive Date: 20200110
  Receipt Date: 20200110
  Transmission Date: 20200409
  Serious: Yes (Death, Other)
  Sender: FDA-Public Use
  Company Number: CA-TEVA-2020-CA-1166459

PATIENT
  Age: 51 Year
  Sex: Female

DRUGS (3)
  1. IMMUNE GLOBULIN (HUMAN) [Suspect]
     Active Substance: HUMAN IMMUNOGLOBULIN G
     Indication: TRANSPLANT REJECTION
     Route: 042
  2. METHYLPREDNISOLONE. [Suspect]
     Active Substance: METHYLPREDNISOLONE
     Indication: TRANSPLANT REJECTION
     Route: 065
  3. RITUXIMAB. [Suspect]
     Active Substance: RITUXIMAB
     Indication: TRANSPLANT REJECTION
     Route: 065

REACTIONS (6)
  - Drug ineffective [Fatal]
  - Cardiac arrest [Fatal]
  - Intentional product use issue [Fatal]
  - Ventricular tachycardia [Fatal]
  - Coronary artery disease [Fatal]
  - Cardiac cirrhosis [Fatal]
